FAERS Safety Report 22193581 (Version 1)
Quarter: 2023Q2

REPORT INFORMATION
  Report Type: Spontaneous
  Country: PL (occurrence: PL)
  Receive Date: 20230410
  Receipt Date: 20230410
  Transmission Date: 20230721
  Serious: Yes (Other)
  Sender: FDA-Public Use
  Company Number: PL-Merck Healthcare KGaA-9393551

PATIENT
  Age: 55 Year
  Sex: Female

DRUGS (5)
  1. ERBITUX [Suspect]
     Active Substance: CETUXIMAB
     Indication: Colon cancer
     Dosage: 500 MG/M2, UNK
     Route: 042
     Dates: start: 20211113
  2. FLUOROURACIL [Suspect]
     Active Substance: FLUOROURACIL
     Indication: Colon cancer
     Dosage: 400 MG/M2, UNKNOWN
     Route: 040
     Dates: start: 20211113
  3. FLUOROURACIL [Suspect]
     Active Substance: FLUOROURACIL
     Dosage: 600 MG/M2, UNKNOWN (22-HOUR INFUSION (DZ1-DZ2))
     Route: 042
     Dates: start: 20211113
  4. LEUCOVORIN [Suspect]
     Active Substance: LEUCOVORIN
     Indication: Colon cancer
     Dosage: 100 MG/M2, UNKNOWN (22-HOUR INFUSION (DZ1-DZ2))
     Route: 042
     Dates: start: 20211113
  5. OXALIPLATIN [Suspect]
     Active Substance: OXALIPLATIN
     Indication: Colon cancer
     Dosage: 85 MG/M2, UNK
     Route: 042
     Dates: start: 20211113

REACTIONS (2)
  - Polyneuropathy [Not Recovered/Not Resolved]
  - Off label use [Unknown]
